FAERS Safety Report 7434064-8 (Version None)
Quarter: 2011Q2

REPORT INFORMATION
  Report Type: 
  Country: None (occurrence: None)
  Receive Date: 20110425
  Receipt Date: 20110414
  Transmission Date: 20111010
  Serious: Yes (Hospitalization)
  Sender: FDA-Public Use
  Company Number: GB-ASTELLAS-2011EU002111

PATIENT
  Sex: Male
  Weight: 65 kg

DRUGS (4)
  1. MYFORTIC [Suspect]
     Indication: RENAL TRANSPLANT
     Dosage: 1440 MG, UNKNOWN/D
     Route: 048
     Dates: start: 20110209
  2. PROGRAF [Suspect]
     Indication: RENAL TRANSPLANT
     Dosage: 4.5 MG, UNKNOWN/D
     Route: 048
     Dates: start: 20110209
  3. SIMULECT [Suspect]
     Indication: RENAL TRANSPLANT
     Dosage: UNK
     Route: 065
     Dates: start: 20110209
  4. PREDNISOLONE [Suspect]
     Indication: RENAL TRANSPLANT
     Dosage: UNK
     Route: 065
     Dates: start: 20110209

REACTIONS (3)
  - BLOOD CREATININE INCREASED [None]
  - MEDICAL DEVICE COMPLICATION [None]
  - DEHYDRATION [None]
